FAERS Safety Report 10620084 (Version 5)
Quarter: 2014Q4

REPORT INFORMATION
  Report Type: Report from Study
  Country: US (occurrence: US)
  Receive Date: 20141202
  Receipt Date: 20141213
  Transmission Date: 20150529
  Serious: Yes (Life-Threatening, Hospitalization, Other)
  Sender: FDA-Public Use
  Company Number: US-EMD SERONO-7323281

PATIENT
  Age: 57 Year
  Sex: Female

DRUGS (8)
  1. REBIF [Suspect]
     Active Substance: INTERFERON BETA-1A
     Route: 058
     Dates: start: 20141013
  2. REBIF [Suspect]
     Active Substance: INTERFERON BETA-1A
     Route: 058
     Dates: end: 20141005
  3. REBIF [Suspect]
     Active Substance: INTERFERON BETA-1A
     Indication: MULTIPLE SCLEROSIS
     Route: 058
     Dates: start: 20140522
  4. REBIF [Suspect]
     Active Substance: INTERFERON BETA-1A
     Route: 058
     Dates: end: 20140811
  5. ERYTHROMYCIN. [Suspect]
     Active Substance: ERYTHROMYCIN
     Indication: TOOTH DISORDER
  6. PERCOCET [Suspect]
     Active Substance: ACETAMINOPHEN\OXYCODONE HYDROCHLORIDE
     Indication: TOOTH DISORDER
  7. REBIF [Suspect]
     Active Substance: INTERFERON BETA-1A
     Route: 058
  8. REBIF [Suspect]
     Active Substance: INTERFERON BETA-1A
     Route: 058
     Dates: start: 20141101

REACTIONS (21)
  - Fibula fracture [Not Recovered/Not Resolved]
  - Balance disorder [Unknown]
  - Injection site mass [Not Recovered/Not Resolved]
  - Seizure [Recovered/Resolved]
  - Muscular weakness [Unknown]
  - Vomiting [Recovered/Resolved]
  - Nausea [Not Recovered/Not Resolved]
  - Transient ischaemic attack [Recovering/Resolving]
  - Purulent discharge [Recovering/Resolving]
  - Wound [Not Recovered/Not Resolved]
  - Spinal osteoarthritis [Unknown]
  - Dyspepsia [Not Recovered/Not Resolved]
  - Influenza like illness [Not Recovered/Not Resolved]
  - Skin ulcer [Recovering/Resolving]
  - Respiratory arrest [Unknown]
  - Tibia fracture [Not Recovered/Not Resolved]
  - Foot fracture [Unknown]
  - Fall [Unknown]
  - Dizziness [Not Recovered/Not Resolved]
  - Tooth disorder [Unknown]
  - Injection site bruising [Not Recovered/Not Resolved]

NARRATIVE: CASE EVENT DATE: 201408
